FAERS Safety Report 24735325 (Version 6)
Quarter: 2025Q4

REPORT INFORMATION
  Report Type: Report from Study
  Country: US (occurrence: US)
  Receive Date: 20241215
  Receipt Date: 20251001
  Transmission Date: 20260118
  Serious: Yes (Other)
  Sender: SUNOVION
  Company Number: US-SUMITOMO PHARMA SWITZERLAND GMBH-2024SPA005598

PATIENT
  Age: 50 Year
  Sex: Male

DRUGS (3)
  1. ORGOVYX [Suspect]
     Active Substance: RELUGOLIX
     Indication: Prostate cancer
     Dosage: 360 MG
     Route: 048
  2. ORGOVYX [Suspect]
     Active Substance: RELUGOLIX
     Dosage: 120 MG, QD
     Route: 048
     Dates: start: 20241107
  3. NUBEQA [Concomitant]
     Active Substance: DAROLUTAMIDE
     Dosage: UNK

REACTIONS (19)
  - Metastasis [Unknown]
  - Diverticulitis [Unknown]
  - Emotional disorder [Unknown]
  - Brain fog [Unknown]
  - Distractibility [Unknown]
  - Weight decreased [Unknown]
  - Decreased appetite [Unknown]
  - Nocturia [Unknown]
  - Gout [Unknown]
  - Dysuria [Unknown]
  - Pain [Unknown]
  - Feeling abnormal [Unknown]
  - Influenza like illness [Unknown]
  - Initial insomnia [Recovering/Resolving]
  - Constipation [Unknown]
  - Hot flush [Unknown]
  - Arthralgia [Unknown]
  - Libido decreased [Unknown]
  - Insomnia [Unknown]
